FAERS Safety Report 20371975 (Version 1)
Quarter: 2022Q1

REPORT INFORMATION
  Report Type: Spontaneous
  Country: DE (occurrence: DE)
  Receive Date: 20220124
  Receipt Date: 20220124
  Transmission Date: 20220424
  Serious: Yes (Death, Other)
  Sender: FDA-Public Use
  Company Number: DE-BoehringerIngelheim-2022-BI-109099

PATIENT
  Age: 86 Year
  Sex: Male

DRUGS (1)
  1. DABIGATRAN [Suspect]
     Active Substance: DABIGATRAN
     Indication: Atrial fibrillation
     Route: 048

REACTIONS (5)
  - Death [Fatal]
  - Mucosal haemorrhage [Unknown]
  - Haematemesis [Unknown]
  - Melaena [Unknown]
  - Gastrointestinal haemorrhage [Unknown]
